FAERS Safety Report 4348988-1 (Version None)
Quarter: 2004Q2

REPORT INFORMATION
  Report Type: 
  Country: None (occurrence: None)
  Receive Date: 20040427
  Receipt Date: 20040427
  Transmission Date: 20050107
  Serious: No
  Sender: FDA-Public Use
  Company Number: None

PATIENT
  Age: 71 Year
  Sex: Female
  Weight: 48.7617 kg

DRUGS (10)
  1. PHENAZOPYRIDINE HCL TAB [Suspect]
     Indication: POLLAKIURIA
     Dosage: 200 MG TID ORAL
     Route: 048
     Dates: start: 20040319, end: 20040323
  2. .. [Concomitant]
  3. ACEON [Concomitant]
  4. ASPIRIN [Concomitant]
  5. ZYPREXA [Concomitant]
  6. PHENELZINE [Concomitant]
  7. CLONAZEPAM [Concomitant]
  8. LORAZEPAM [Concomitant]
  9. ALPRAZOLAM [Concomitant]
  10. APAP TAB [Concomitant]

REACTIONS (1)
  - JAUNDICE [None]
